FAERS Safety Report 11645676 (Version 2)
Quarter: 2015Q4

REPORT INFORMATION
  Report Type: Report from Study
  Country: FR (occurrence: FR)
  Receive Date: 20151020
  Receipt Date: 20151118
  Transmission Date: 20160304
  Serious: Yes (Other)
  Sender: FDA-Public Use
  Company Number: FR-009507513-1510FRA006631

PATIENT

DRUGS (3)
  1. ALISPORIVIR [Suspect]
     Active Substance: ALISPORIVIR
     Indication: CHRONIC HEPATITIS C
     Dosage: 800 MG, QD
  2. MK-0000 [Suspect]
     Active Substance: INVESTIGATIONAL PRODUCT
  3. RIBAVIRIN. [Suspect]
     Active Substance: RIBAVIRIN
     Indication: CHRONIC HEPATITIS C
     Dosage: UNK
     Route: 048

REACTIONS (1)
  - Adverse event [Unknown]
